FAERS Safety Report 5494622-7 (Version None)
Quarter: 2007Q4

REPORT INFORMATION
  Report Type: 
  Country: None (occurrence: None)
  Receive Date: 20071024
  Receipt Date: 20071016
  Transmission Date: 20080405
  Serious: Yes (Other)
  Sender: FDA-Public Use
  Company Number: CA-ASTRAZENECA-2007UW24248

PATIENT
  Age: 71 Year
  Sex: Female

DRUGS (7)
  1. ARIMIDEX [Suspect]
     Route: 048
     Dates: start: 20061110
  2. CRESTOR [Suspect]
     Route: 048
  3. TAMOXIFEN CITRATE [Suspect]
     Route: 048
  4. ACTONEL [Concomitant]
  5. PANTOPRAZOLE SODIUM [Concomitant]
  6. ADALAT CC [Concomitant]
  7. MELOXICAM [Concomitant]

REACTIONS (2)
  - HEADACHE [None]
  - MENINGIOMA [None]
